FAERS Safety Report 6525441-8 (Version None)
Quarter: 2010Q1

REPORT INFORMATION
  Report Type: 
  Country: None (occurrence: None)
  Receive Date: 20100104
  Receipt Date: 20091228
  Transmission Date: 20100710
  Serious: Yes (Other)
  Sender: FDA-Public Use
  Company Number: CHPA2009DE20878

PATIENT
  Sex: Male

DRUGS (2)
  1. NICOTINELL GUM (NCH) [Suspect]
     Indication: SMOKING CESSATION THERAPY
     Dosage: 2 MG, UNK
  2. FERRUM H [Concomitant]

REACTIONS (2)
  - DYSPEPSIA [None]
  - GASTRITIS [None]
